FAERS Safety Report 10216371 (Version 2)
Quarter: 2014Q2

REPORT INFORMATION
  Report Type: Spontaneous
  Country: TR (occurrence: TR)
  Receive Date: 20140604
  Receipt Date: 20140604
  Transmission Date: 20141212
  Serious: Yes (Other)
  Sender: FDA-Public Use
  Company Number: TR-PFIZER INC-2014145280

PATIENT
  Age: 27 Year
  Sex: Male
  Weight: 95 kg

DRUGS (5)
  1. ZELDOX [Suspect]
     Indication: DEPRESSION
     Dosage: 40 MG, UNK
  2. ZELDOX [Suspect]
     Dosage: 40 MG, 1X/DAY
  3. ZELDOX [Suspect]
     Dosage: 40 MG, 2X/DAY
  4. ZELDOX [Suspect]
     Dosage: 40 MG, 1X/DAY
  5. EFEXOR XR [Concomitant]
     Dosage: UNK

REACTIONS (4)
  - Cushing^s syndrome [Recovered/Resolved]
  - Tachycardia [Recovered/Resolved]
  - Anxiety [Recovered/Resolved]
  - Restlessness [Recovered/Resolved]
